FAERS Safety Report 5765155-5 (Version None)
Quarter: 2008Q2

REPORT INFORMATION
  Report Type: 
  Country: None (occurrence: None)
  Receive Date: 20080611
  Receipt Date: 20080611
  Transmission Date: 20081010
  Serious: Yes (Other)
  Sender: FDA-Public Use
  Company Number: None

PATIENT
  Age: 55 Year
  Sex: Male

DRUGS (1)
  1. HEPARIN LOCK-FLUSH [Suspect]
     Indication: ANTICOAGULANT THERAPY
     Dosage: 1X FLUSH OF CATHETER PORT 1X OR UD PREV UTILIZATION
     Dates: start: 20080527, end: 20080527

REACTIONS (5)
  - CATHETER RELATED INFECTION [None]
  - CULTURE POSITIVE [None]
  - DYSPNOEA [None]
  - FLUSHING [None]
  - FUNGAL INFECTION [None]
